FAERS Safety Report 11663502 (Version 1)
Quarter: 2015Q4

REPORT INFORMATION
  Report Type: Spontaneous
  Country: US (occurrence: None)
  Receive Date: 20151026
  Receipt Date: 20151026
  Transmission Date: 20160304
  Serious: No
  Sender: FDA-Public Use
  Company Number: None

PATIENT
  Age: 69 Year
  Sex: Female
  Weight: 52.16 kg

DRUGS (9)
  1. CELECOXIB. [Suspect]
     Active Substance: CELECOXIB
     Indication: RHEUMATOID ARTHRITIS
     Route: 048
     Dates: start: 20141215, end: 20150103
  2. LISINOPRIL. [Concomitant]
     Active Substance: LISINOPRIL
  3. AMBIEN [Concomitant]
     Active Substance: ZOLPIDEM TARTRATE
  4. TRAMADOL. [Concomitant]
     Active Substance: TRAMADOL
  5. VITAMIN D [Concomitant]
     Active Substance: CHOLECALCIFEROL
  6. MSM [Concomitant]
     Active Substance: DIMETHYL SULFONE
  7. VIT B [Concomitant]
     Active Substance: VITAMINS
  8. ALECVE [Concomitant]
  9. CA [Concomitant]

REACTIONS (2)
  - Somnolence [None]
  - Blood pressure increased [None]

NARRATIVE: CASE EVENT DATE: 20141217
